FAERS Safety Report 10240057 (Version 1)
Quarter: 2014Q2

REPORT INFORMATION
  Report Type: Spontaneous
  Country: IE (occurrence: US)
  Receive Date: 20140617
  Receipt Date: 20140617
  Transmission Date: 20141212
  Serious: Yes (Hospitalization)
  Sender: FDA-Public Use
  Company Number: 2014SP003216

PATIENT
  Age: 63 Year
  Sex: Male

DRUGS (3)
  1. VANCOMYCIN [Suspect]
     Indication: PRODUCT USED FOR UNKNOWN INDICATION
  2. DABRAFENIB [Suspect]
     Indication: PRODUCT USED FOR UNKNOWN INDICATION
  3. TRAMETINIB [Suspect]
     Indication: PRODUCT USED FOR UNKNOWN INDICATION

REACTIONS (6)
  - Blood creatinine increased [Unknown]
  - Encephalopathy [Unknown]
  - Neurological symptom [Recovered/Resolved]
  - Dysphagia [Unknown]
  - Abasia [Unknown]
  - Renal failure [Not Recovered/Not Resolved]
